FAERS Safety Report 9431754 (Version 1)
Quarter: 2013Q3

REPORT INFORMATION
  Report Type: Spontaneous
  Country: IN (occurrence: IN)
  Receive Date: 20130731
  Receipt Date: 20130731
  Transmission Date: 20140515
  Serious: Yes (Death, Hospitalization)
  Sender: FDA-Public Use
  Company Number: IN-ROCHE-1255341

PATIENT
  Age: 68 Year
  Sex: Male
  Weight: 66.06 kg

DRUGS (4)
  1. LUCENTIS [Suspect]
     Indication: DIABETIC RETINAL OEDEMA
     Route: 050
     Dates: end: 20130319
  2. LUCENTIS [Suspect]
     Route: 050
     Dates: end: 20130419
  3. LUCENTIS [Suspect]
     Route: 050
     Dates: end: 20130524
  4. LUCENTIS [Suspect]
     Route: 050
     Dates: end: 20130702

REACTIONS (1)
  - Pneumonia [Fatal]
